FAERS Safety Report 18954699 (Version 5)
Quarter: 2021Q2

REPORT INFORMATION
  Report Type: Spontaneous
  Country: US (occurrence: US)
  Receive Date: 20210301
  Receipt Date: 20210408
  Transmission Date: 20210717
  Serious: Yes (Hospitalization)
  Sender: FDA-Public Use
  Company Number: US-BIOGEN-2021BI00983898

PATIENT
  Age: 57 Year
  Sex: Female

DRUGS (2)
  1. COVID VACCINE [Concomitant]
     Indication: COVID-19 PROPHYLAXIS
     Route: 065
  2. TECFIDERA [Suspect]
     Active Substance: DIMETHYL FUMARATE
     Indication: MULTIPLE SCLEROSIS
     Route: 065
     Dates: start: 20140501, end: 20210218

REACTIONS (5)
  - Rib fracture [Unknown]
  - Jaw fracture [Not Recovered/Not Resolved]
  - Haematoma [Unknown]
  - Road traffic accident [Recovered/Resolved]
  - Fall [Recovered/Resolved]

NARRATIVE: CASE EVENT DATE: 20210218
